FAERS Safety Report 11358945 (Version 1)
Quarter: 2015Q3

REPORT INFORMATION
  Report Type: Spontaneous
  Country: US (occurrence: None)
  Receive Date: 20150807
  Receipt Date: 20150807
  Transmission Date: 20151125
  Serious: Yes (Other)
  Sender: FDA-Public Use
  Company Number: None

PATIENT
  Age: 69 Year
  Sex: Female

DRUGS (1)
  1. HUMIRA [Suspect]
     Active Substance: ADALIMUMAB
     Indication: CROHN^S DISEASE
     Dosage: 4 DOSES INTO
     Dates: start: 20150701

REACTIONS (6)
  - Bladder spasm [None]
  - Influenza like illness [None]
  - Condition aggravated [None]
  - Fatigue [None]
  - Headache [None]
  - Pain [None]

NARRATIVE: CASE EVENT DATE: 20150701
